FAERS Safety Report 9049645 (Version 1)
Quarter: 2013Q1

REPORT INFORMATION
  Report Type: Spontaneous
  Country: US (occurrence: US)
  Receive Date: 20130205
  Receipt Date: 20130205
  Transmission Date: 20140127
  Serious: No
  Sender: FDA-Public Use
  Company Number: US-009507513-1301USA012493

PATIENT
  Age: 24 None
  Sex: Female
  Weight: 65.76 kg

DRUGS (1)
  1. NUVARING [Suspect]
     Indication: CONTRACEPTION
     Dosage: 24 DAYS LEAVE OUT 4 DAY
     Route: 067
     Dates: start: 201008

REACTIONS (5)
  - Inappropriate schedule of drug administration [Unknown]
  - Device expulsion [Unknown]
  - Incorrect drug administration duration [Unknown]
  - No adverse event [Unknown]
  - Product quality issue [Unknown]
